FAERS Safety Report 22296886 (Version 1)
Quarter: 2023Q2

REPORT INFORMATION
  Report Type: Report from Study
  Country: US (occurrence: US)
  Receive Date: 20230509
  Receipt Date: 20230509
  Transmission Date: 20230721
  Serious: No
  Sender: FDA-Public Use
  Company Number: US-ACADIA PHARMACEUTICALS INC.-ACA-2023-PIM-001467

PATIENT
  Age: 65 Year
  Sex: Female

DRUGS (10)
  1. NUPLAZID [Suspect]
     Active Substance: PIMAVANSERIN TARTRATE
     Indication: Hallucination
     Dosage: 34 MILLIGRAM, QD
     Route: 048
     Dates: start: 20221117
  2. NUPLAZID [Suspect]
     Active Substance: PIMAVANSERIN TARTRATE
     Indication: Parkinson^s disease
  3. QUETIAPINE [Suspect]
     Active Substance: QUETIAPINE
     Dosage: 50 MILLIGRAM
  4. DOXYCYCLINE [Concomitant]
     Active Substance: DOXYCYCLINE
  5. AMOXICILLIN [Concomitant]
     Active Substance: AMOXICILLIN
  6. AJOVY [Concomitant]
     Active Substance: FREMANEZUMAB-VFRM
  7. TRAMADOL [Concomitant]
     Active Substance: TRAMADOL
  8. DROXIDOPA [Concomitant]
     Active Substance: DROXIDOPA
  9. ALBUTEROL [Concomitant]
     Active Substance: ALBUTEROL
  10. FUROSEMIDE [Concomitant]
     Active Substance: FUROSEMIDE

REACTIONS (1)
  - Glycosylated haemoglobin increased [Not Recovered/Not Resolved]

NARRATIVE: CASE EVENT DATE: 20230414
